FAERS Safety Report 7821803-7 (Version None)
Quarter: 2011Q4

REPORT INFORMATION
  Report Type: 
  Country: None (occurrence: None)
  Receive Date: 20111018
  Receipt Date: 20101213
  Transmission Date: 20120403
  Serious: No
  Sender: FDA-Public Use
  Company Number: US-ASTRAZENECA-2010SE58892

PATIENT
  Age: 50 Year
  Sex: Male
  Weight: 117.9 kg

DRUGS (11)
  1. SYMBICORT [Suspect]
     Indication: CHRONIC OBSTRUCTIVE PULMONARY DISEASE
     Dosage: 160 MCG BID
     Route: 055
     Dates: start: 20080101
  2. METFORMIN HCL [Concomitant]
     Route: 048
  3. FISH OIL [Concomitant]
     Route: 048
  4. SYMBICORT [Suspect]
     Indication: ASTHMA
     Dosage: 160 MCG BID
     Route: 055
     Dates: start: 20080101
  5. SEROQUEL [Concomitant]
     Indication: BIPOLAR DISORDER
     Route: 048
     Dates: start: 20050101
  6. RHINOCORT [Concomitant]
     Indication: RHINITIS ALLERGIC
     Route: 045
     Dates: start: 20080101
  7. LISINOPRIL [Concomitant]
     Route: 048
  8. METOPROLOL TARTRATE [Concomitant]
     Route: 048
  9. PRAVASTATIN [Concomitant]
     Route: 048
  10. PROVENTIL [Concomitant]
     Indication: ASTHMA
     Route: 055
  11. NEXIUM [Concomitant]
     Indication: GASTROOESOPHAGEAL REFLUX DISEASE
     Route: 048
     Dates: start: 20050101

REACTIONS (2)
  - DRUG INEFFECTIVE [None]
  - DYSPNOEA EXERTIONAL [None]
